FAERS Safety Report 21576670 (Version 3)
Quarter: 2023Q1

REPORT INFORMATION
  Report Type: Report from Study
  Country: KR (occurrence: KR)
  Receive Date: 20221110
  Receipt Date: 20230320
  Transmission Date: 20230418
  Serious: Yes (Hospitalization, Other)
  Sender: FDA-Public Use
  Company Number: KR-TAKEDA-2022TUS082707

PATIENT
  Age: 67 Year
  Sex: Male
  Weight: 164 kg

DRUGS (6)
  1. IXAZOMIB [Suspect]
     Active Substance: IXAZOMIB
     Indication: Plasma cell myeloma
     Dosage: 4 MILLIGRAM, QD
     Route: 048
     Dates: start: 20211206
  2. DEXAMETHASONE [Suspect]
     Active Substance: DEXAMETHASONE
     Indication: Plasma cell myeloma
     Dosage: 20 MILLIGRAM, 2/WEEK
     Route: 048
     Dates: start: 20211206
  3. LENALIDOMIDE [Suspect]
     Active Substance: LENALIDOMIDE
     Indication: Plasma cell myeloma
     Dosage: 15 MILLIGRAM, QD
     Route: 048
     Dates: start: 20211206
  4. CEFTRIAXONE [Concomitant]
     Active Substance: CEFTRIAXONE
     Indication: COVID-19 pneumonia
     Dosage: 2 GRAM
     Route: 042
     Dates: start: 20220325, end: 20220328
  5. TAZOPERAN [Concomitant]
     Indication: COVID-19 pneumonia
     Dosage: 4.5 GRAM
     Route: 042
     Dates: start: 20220324, end: 20220411
  6. AMBISOME [Concomitant]
     Active Substance: AMPHOTERICIN B
     Indication: COVID-19 pneumonia
     Dosage: 270 MILLIGRAM
     Route: 042
     Dates: start: 20220404, end: 20220414

REACTIONS (2)
  - COVID-19 [Recovered/Resolved]
  - Bronchopulmonary aspergillosis [Recovered/Resolved]

NARRATIVE: CASE EVENT DATE: 20220425
